FAERS Safety Report 19685501 (Version 1)
Quarter: 2021Q3

REPORT INFORMATION
  Report Type: Spontaneous
  Country: CA (occurrence: CA)
  Receive Date: 20210811
  Receipt Date: 20210811
  Transmission Date: 20211014
  Serious: Yes (Life-Threatening, Hospitalization, Other)
  Sender: FDA-Public Use
  Company Number: CA-PFIZER INC-202100985216

PATIENT
  Age: 88 Year
  Sex: Female
  Weight: 69 kg

DRUGS (13)
  1. BRILINTA [Concomitant]
     Active Substance: TICAGRELOR
  2. PERINDOPRIL [Concomitant]
     Active Substance: PERINDOPRIL
  3. INSULIN [Concomitant]
     Active Substance: INSULIN NOS
     Dosage: (30/70)
  4. PANTOPRAZOLE [Concomitant]
     Active Substance: PANTOPRAZOLE
  5. NASONEX [Concomitant]
     Active Substance: MOMETASONE FUROATE
     Dosage: (DOSAGE FORM: SPRAY, METERED DOSE)
  6. VITAMIN D [COLECALCIFEROL] [Concomitant]
     Active Substance: CHOLECALCIFEROL
  7. ATORVASTATIN CALCIUM. [Suspect]
     Active Substance: ATORVASTATIN CALCIUM
     Indication: DYSLIPIDAEMIA
     Dosage: 80 MG, 1X/DAY
     Route: 048
  8. METFORMIN [Concomitant]
     Active Substance: METFORMIN HYDROCHLORIDE
  9. ASPIRIN [ACETYLSALICYLIC ACID] [Concomitant]
     Active Substance: ASPIRIN
  10. BISOPROLOL [Concomitant]
     Active Substance: BISOPROLOL
  11. CALCIUM [Concomitant]
     Active Substance: CALCIUM
  12. SYNTHROID [Concomitant]
     Active Substance: LEVOTHYROXINE SODIUM
  13. NITROGLYCERIN. [Concomitant]
     Active Substance: NITROGLYCERIN

REACTIONS (3)
  - Hepatitis [Recovered/Resolved]
  - Rhabdomyolysis [Recovered/Resolved]
  - Myositis [Recovered/Resolved]
